FAERS Safety Report 4906392-9 (Version None)
Quarter: 2006Q1

REPORT INFORMATION
  Report Type: 
  Country: None (occurrence: None)
  Receive Date: 20060206
  Receipt Date: 20060121
  Transmission Date: 20060701
  Serious: Yes (Hospitalization)
  Sender: FDA-Public Use
  Company Number: GXKR2006ES00642

PATIENT
  Age: 51 Year
  Sex: Female

DRUGS (6)
  1. ASPIRIN [Suspect]
     Dosage: 200 MG, ORAL
     Route: 048
  2. ALMAGATE [Concomitant]
  3. CAPTOPRIL [Concomitant]
  4. ATENOLOL [Concomitant]
  5. NIFEDIPINE [Concomitant]
  6. CHLORTHALIDONE [Concomitant]

REACTIONS (3)
  - APPENDIX DISORDER [None]
  - LOWER GASTROINTESTINAL HAEMORRHAGE [None]
  - ULCER HAEMORRHAGE [None]
